FAERS Safety Report 4980327-5 (Version None)
Quarter: 2006Q2

REPORT INFORMATION
  Report Type: 
  Country: None (occurrence: None)
  Receive Date: 20060421
  Receipt Date: 20060421
  Transmission Date: 20061013
  Serious: Yes (Other)
  Sender: FDA-Public Use
  Company Number: None

PATIENT
  Age: 65 Year
  Sex: Female
  Weight: 85.3 kg

DRUGS (5)
  1. HEPARIN SODIUM 25,000 UNITS IN DEXTROSE 5% [Suspect]
     Indication: THROMBOSIS PROPHYLAXIS
     Dosage: 1000 UNITS/HOUR   CONTINUOUS   IV DRIP
     Route: 041
     Dates: start: 20050427, end: 20050428
  2. DILTIAZEM [Concomitant]
  3. RISEDRONATE [Concomitant]
  4. ASPIRIN [Concomitant]
  5. NITROGLYCERIN [Concomitant]

REACTIONS (1)
  - RASH PRURITIC [None]
